FAERS Safety Report 9730676 (Version 3)
Quarter: 2014Q1

REPORT INFORMATION
  Report Type: Spontaneous
  Country: US (occurrence: US)
  Receive Date: 20131202
  Receipt Date: 20140314
  Transmission Date: 20141002
  Serious: Yes (Hospitalization, Other)
  Sender: FDA-Public Use
  Company Number: US-CELGENEUS-163-20785-13113910

PATIENT
  Age: 44 Year
  Sex: Female

DRUGS (4)
  1. THALOMID [Suspect]
     Indication: GASTROINTESTINAL HAEMORRHAGE
     Dosage: 100 MILLIGRAM
     Route: 048
     Dates: start: 20090406
  2. THALOMID [Suspect]
     Dosage: 150-300 MG
     Route: 048
     Dates: start: 200907
  3. THALOMID [Suspect]
     Dosage: 50 MILLIGRAM
     Route: 048
     Dates: start: 201209, end: 20131118
  4. OCTREOTIDE [Concomitant]
     Indication: GASTROINTESTINAL HAEMORRHAGE
     Route: 065

REACTIONS (1)
  - Acute myeloid leukaemia [Not Recovered/Not Resolved]
